FAERS Safety Report 17974835 (Version 4)
Quarter: 2021Q3

REPORT INFORMATION
  Report Type: Report from Study
  Country: US (occurrence: US)
  Receive Date: 20200702
  Receipt Date: 20210810
  Transmission Date: 20211014
  Serious: Yes (Other)
  Sender: FDA-Public Use
  Company Number: US-SHIRE-US202019762

PATIENT
  Sex: Female
  Weight: 106.5 kg

DRUGS (26)
  1. MODAFINIL. [Concomitant]
     Active Substance: MODAFINIL
  2. CYMBALTA [Concomitant]
     Active Substance: DULOXETINE HYDROCHLORIDE
  3. NP THYROID [Concomitant]
     Active Substance: LEVOTHYROXINE\LIOTHYRONINE
  4. CUVITRU [Suspect]
     Active Substance: HUMAN IMMUNOGLOBULIN G
     Dosage: 30 GRAM, 1X/2WKS
     Route: 065
  5. DIPHENHYDRAMINE. [Concomitant]
     Active Substance: DIPHENHYDRAMINE
  6. VALACYCLOVIR [Concomitant]
     Active Substance: VALACYCLOVIR HYDROCHLORIDE
  7. CARVEDILOL. [Concomitant]
     Active Substance: CARVEDILOL
  8. EVOXAC [Concomitant]
     Active Substance: CEVIMELINE HYDROCHLORIDE
  9. CUVITRU [Suspect]
     Active Substance: HUMAN IMMUNOGLOBULIN G
     Indication: PRIMARY IMMUNODEFICIENCY SYNDROME
     Dosage: 30 GRAM, 1X/2WKS
     Route: 058
     Dates: start: 20190703
  10. GAMMAGARD LIQUID [Suspect]
     Active Substance: HUMAN IMMUNOGLOBULIN G
     Indication: PRIMARY IMMUNODEFICIENCY SYNDROME
     Dosage: UNK
     Route: 042
  11. LIDOCAINE. [Concomitant]
     Active Substance: LIDOCAINE
  12. HYDRALAZINE [Concomitant]
     Active Substance: HYDRALAZINE HYDROCHLORIDE
  13. AZITHROMYCIN ANHYDROUS. [Concomitant]
     Active Substance: AZITHROMYCIN ANHYDROUS
  14. TRULICITY [Concomitant]
     Active Substance: DULAGLUTIDE
  15. PROTONIX [OMEPRAZOLE] [Concomitant]
     Active Substance: OMEPRAZOLE
  16. NORCO [Concomitant]
     Active Substance: ACETAMINOPHEN\HYDROCODONE BITARTRATE
  17. CYANOCOBALAMIN. [Concomitant]
     Active Substance: CYANOCOBALAMIN
  18. ESTRACE [Concomitant]
     Active Substance: ESTRADIOL
  19. LUNESTA [Concomitant]
     Active Substance: ESZOPICLONE
  20. BENICAR [Concomitant]
     Active Substance: OLMESARTAN MEDOXOMIL
  21. MELOXICAM. [Concomitant]
     Active Substance: MELOXICAM
     Indication: RASH
     Route: 065
  22. NITROGLYCERIN. [Concomitant]
     Active Substance: NITROGLYCERIN
  23. PRAZOSIN. [Concomitant]
     Active Substance: PRAZOSIN
  24. EPINEPHRINE. [Concomitant]
     Active Substance: EPINEPHRINE
  25. CRESTOR [Concomitant]
     Active Substance: ROSUVASTATIN CALCIUM
  26. VITAMIN D2 [Concomitant]
     Active Substance: ERGOCALCIFEROL

REACTIONS (13)
  - Sjogren^s syndrome [Unknown]
  - Autoimmune disorder [Unknown]
  - Keratorhexis [Unknown]
  - Mouth ulceration [Unknown]
  - Blood pressure inadequately controlled [Unknown]
  - Rash [Unknown]
  - Hypoventilation [Unknown]
  - Spinal osteoarthritis [Unknown]
  - Adrenal gland cancer [Unknown]
  - Blood pressure increased [Unknown]
  - Arthralgia [Unknown]
  - Candida infection [Unknown]
  - Oral candidiasis [Unknown]
